FAERS Safety Report 7418876-2 (Version None)
Quarter: 2011Q2

REPORT INFORMATION
  Report Type: 
  Country: None (occurrence: None)
  Receive Date: 20110415
  Receipt Date: 20110411
  Transmission Date: 20111010
  Serious: No
  Sender: FDA-Public Use
  Company Number: US-PFIZER INC-2011067267

PATIENT
  Sex: Male
  Weight: 86.168 kg

DRUGS (13)
  1. NEXIUM [Suspect]
     Indication: GASTROOESOPHAGEAL REFLUX DISEASE
  2. NORVASC [Suspect]
     Indication: CARDIAC DISORDER
     Dosage: UNK
     Route: 048
  3. CRESTOR [Suspect]
     Indication: CARDIAC DISORDER
     Dosage: UNK
     Route: 048
  4. FLOMAX [Suspect]
     Indication: PROSTATIC DISORDER
     Dosage: UNK
     Route: 048
  5. ZETIA [Suspect]
     Indication: BLOOD CHOLESTEROL INCREASED
     Dosage: UNK
     Route: 048
  6. ASPIRIN [Suspect]
     Indication: CARDIAC DISORDER
     Dosage: UNK
  7. OXYCODONE [Suspect]
     Dosage: UNK
  8. NEXIUM [Suspect]
     Indication: ABDOMINAL DISCOMFORT
     Dosage: UNK
     Route: 048
  9. SOTALOL [Suspect]
     Indication: HEART RATE IRREGULAR
  10. DEPO-MEDROL [Suspect]
     Indication: BACK PAIN
     Dosage: UNK,EVERY 5 TO 6 MONTHS
     Dates: start: 20100501
  11. ZETIA [Suspect]
     Indication: CARDIAC DISORDER
  12. SOTALOL [Suspect]
     Indication: CARDIAC DISORDER
     Dosage: UNK
  13. FLECTOR [Suspect]
     Indication: PAIN
     Dosage: UNK
     Route: 061

REACTIONS (3)
  - ABDOMINAL DISCOMFORT [None]
  - DRUG INEFFECTIVE [None]
  - PAIN [None]
